FAERS Safety Report 11675028 (Version 3)
Quarter: 2015Q4

REPORT INFORMATION
  Report Type: Spontaneous
  Country: IT (occurrence: IT)
  Receive Date: 20151028
  Receipt Date: 20151109
  Transmission Date: 20160304
  Serious: Yes (Hospitalization)
  Sender: FDA-Public Use
  Company Number: IT-009507513-1510ITA009873

PATIENT
  Age: 28 Year
  Sex: Male

DRUGS (5)
  1. FLUNOX (FLURAZEPAM HYDROCHLORIDE) [Suspect]
     Active Substance: FLURAZEPAM HYDROCHLORIDE
     Indication: INTENTIONAL SELF-INJURY
     Dosage: 15 DF, QD
     Route: 048
  2. TRILAFON [Suspect]
     Active Substance: PERPHENAZINE
     Indication: AGGRESSION
     Dosage: 16 MG, DAILY
     Route: 048
  3. TRILAFON [Suspect]
     Active Substance: PERPHENAZINE
     Indication: INTENTIONAL SELF-INJURY
     Dosage: 24 MG, DAILY
     Route: 048
  4. TRILAFON [Suspect]
     Active Substance: PERPHENAZINE
     Dosage: 20 DF, QD
     Route: 048
  5. EN [Suspect]
     Active Substance: DELORAZEPAM
     Indication: INTENTIONAL SELF-INJURY
     Dosage: 10 ML, QD (STRENGTH: 1 MG/ML), ORAL DROPS SOLUTION
     Route: 048

REACTIONS (3)
  - Intentional self-injury [Recovering/Resolving]
  - Poverty of speech [Recovering/Resolving]
  - Drug abuse [Recovering/Resolving]

NARRATIVE: CASE EVENT DATE: 20150907
